FAERS Safety Report 15387226 (Version 1)
Quarter: 2018Q3

REPORT INFORMATION
  Report Type: Spontaneous
  Country: DE (occurrence: DE)
  Receive Date: 20180914
  Receipt Date: 20180914
  Transmission Date: 20181010
  Serious: Yes (Congenital Anomaly)
  Sender: FDA-Public Use
  Company Number: DE-ASTRAZENECA-2018SF12833

PATIENT
  Age: 0 Year
  Sex: Female
  Weight: 2.9 kg

DRUGS (5)
  1. L?THYROXIN [Concomitant]
     Active Substance: LEVOTHYROXINE SODIUM
     Indication: HYPOTHYROIDISM
     Dosage: 25 [???G/D ]25UG/INHAL DAILY
     Route: 064
     Dates: start: 20170422, end: 20180116
  2. CANIFUG [Concomitant]
     Indication: VULVOVAGINAL MYCOTIC INFECTION
     Route: 064
     Dates: start: 20170829, end: 20170903
  3. COLIFOAM [Concomitant]
     Active Substance: HYDROCORTISONE
     Indication: CROHN^S DISEASE
     Dosage: 100 [MG/D ]
     Route: 064
     Dates: start: 20170708, end: 20170730
  4. BUDENOFALK [Suspect]
     Active Substance: BUDESONIDE
     Indication: CROHN^S DISEASE
     Dosage: 9 [MG/D ]/ 3?9 MG/D UNKNOWN
     Route: 064
     Dates: start: 20170422, end: 20180116
  5. FOLSAN [Concomitant]
     Active Substance: FOLIC ACID
     Indication: PROPHYLAXIS OF NEURAL TUBE DEFECT
     Dosage: 0.8 [MG/D (BIS 0.4) ]
     Route: 064
     Dates: start: 20170422, end: 20180116

REACTIONS (2)
  - Congenital tricuspid valve atresia [Recovered/Resolved with Sequelae]
  - Congenital pulmonary valve atresia [Recovered/Resolved with Sequelae]
